FAERS Safety Report 18555259 (Version 1)
Quarter: 2020Q4

REPORT INFORMATION
  Report Type: Spontaneous
  Country: US (occurrence: US)
  Receive Date: 20201127
  Receipt Date: 20201127
  Transmission Date: 20210114
  Serious: Yes (Hospitalization, Other)
  Sender: FDA-Public Use
  Company Number: US-GALDERMA-US2020049897

PATIENT
  Age: 52 Year
  Sex: Female

DRUGS (16)
  1. ZYRTEC [Concomitant]
     Active Substance: CETIRIZINE HYDROCHLORIDE
     Indication: PRODUCT USED FOR UNKNOWN INDICATION
     Route: 048
  2. METRONIDAZOLE TOPICAL GEL, 0.75% [Suspect]
     Active Substance: METRONIDAZOLE
     Indication: TUMOUR ULCERATION
  3. FLUOXETINE [Concomitant]
     Active Substance: FLUOXETINE HYDROCHLORIDE
     Indication: ANXIETY
  4. VINORELBINE [Concomitant]
     Active Substance: VINORELBINE TARTRATE
     Indication: BREAST CANCER METASTATIC
     Route: 042
     Dates: start: 20191122, end: 20200407
  5. HERCEPTIN [Concomitant]
     Active Substance: TRASTUZUMAB
     Indication: BREAST CANCER METASTATIC
     Route: 042
     Dates: start: 20191122, end: 20200407
  6. AVELUMAB [Concomitant]
     Active Substance: AVELUMAB
     Indication: BREAST CANCER METASTATIC
     Route: 042
     Dates: start: 20191122, end: 20200407
  7. FLUOXETINE [Concomitant]
     Active Substance: FLUOXETINE HYDROCHLORIDE
     Indication: DEPRESSION
     Dosage: 60 MG
     Route: 048
  8. TRAZODONE [Concomitant]
     Active Substance: TRAZODONE HYDROCHLORIDE
     Indication: INSOMNIA
     Dosage: 150 MG
     Route: 065
  9. CLONAZEPAM. [Concomitant]
     Active Substance: CLONAZEPAM
     Indication: ANXIETY
  10. XARELTO [Concomitant]
     Active Substance: RIVAROXABAN
     Indication: DEVICE RELATED THROMBOSIS
     Dosage: 20 MG
     Route: 065
  11. MS CONTIN [Concomitant]
     Active Substance: MORPHINE SULFATE
     Indication: BREAST CANCER METASTATIC
     Route: 048
  12. METRONIDAZOLE TOPICAL GEL, 0.75% [Suspect]
     Active Substance: METRONIDAZOLE
     Indication: CANCER PAIN
     Dosage: 0.75%
     Route: 061
     Dates: start: 20200227
  13. MEDIHONEY [Concomitant]
     Active Substance: HONEY
     Indication: TUMOUR ULCERATION
     Route: 065
     Dates: start: 20200227, end: 20200227
  14. CLONAZEPAM. [Concomitant]
     Active Substance: CLONAZEPAM
     Indication: DEPRESSION
     Route: 048
  15. OXYCODONE [Concomitant]
     Active Substance: OXYCODONE
     Indication: CANCER PAIN
     Route: 048
  16. MEDIHONEY [Concomitant]
     Active Substance: HONEY
     Indication: CANCER PAIN

REACTIONS (12)
  - Dyspnoea [Unknown]
  - Intentional product use issue [Recovered/Resolved]
  - Skin warm [Unknown]
  - Skin swelling [Unknown]
  - Tachycardia [Unknown]
  - Skin odour abnormal [Unknown]
  - Cancer pain [Unknown]
  - Weight decreased [Unknown]
  - Erythema [Unknown]
  - Breast abscess [Unknown]
  - Decreased appetite [Unknown]
  - Constipation [Unknown]

NARRATIVE: CASE EVENT DATE: 2020
